FAERS Safety Report 7420728-9 (Version None)
Quarter: 2011Q2

REPORT INFORMATION
  Report Type: 
  Country: None (occurrence: None)
  Receive Date: 20110418
  Receipt Date: 20110408
  Transmission Date: 20111010
  Serious: Yes (Other)
  Sender: FDA-Public Use
  Company Number: JP-ROCHE-753021

PATIENT
  Sex: Female
  Weight: 2.6 kg

DRUGS (1)
  1. OSELTAMIVIR [Suspect]
     Indication: INFLUENZA
     Route: 064
     Dates: start: 20091124, end: 20091128

REACTIONS (4)
  - DRUG EXPOSURE DURING PREGNANCY [None]
  - BODY HEIGHT BELOW NORMAL [None]
  - UNDERWEIGHT [None]
  - CAESAREAN SECTION [None]
